FAERS Safety Report 5519442-6 (Version None)
Quarter: 2007Q4

REPORT INFORMATION
  Report Type: 
  Country: None (occurrence: None)
  Receive Date: 20071116
  Receipt Date: 20071105
  Transmission Date: 20080405
  Serious: Yes (Hospitalization)
  Sender: FDA-Public Use
  Company Number: FR-BRISTOL-MYERS SQUIBB COMPANY-13979729

PATIENT
  Age: 57 Year
  Sex: Male

DRUGS (7)
  1. ENDOXAN [Suspect]
     Indication: LYMPHOMA
     Route: 048
     Dates: start: 20070517, end: 20070517
  2. DOXORUBICIN HCL [Suspect]
     Indication: LYMPHOMA
     Route: 042
     Dates: start: 20070517, end: 20070517
  3. METHOTREXATE [Suspect]
     Indication: LYMPHOMA
     Route: 042
     Dates: start: 20070517, end: 20070517
  4. BLEOMYCIN [Suspect]
     Indication: LYMPHOMA
     Route: 042
     Dates: start: 20070517, end: 20070521
  5. MABTHERA [Suspect]
     Indication: LYMPHOMA
     Route: 042
     Dates: start: 20070517, end: 20070517
  6. ELDISINE [Suspect]
     Indication: LYMPHOMA
     Route: 042
     Dates: start: 20070517, end: 20070521
  7. CORTANCYL [Concomitant]
     Route: 048
     Dates: start: 20070517, end: 20070521

REACTIONS (3)
  - ANOREXIA [None]
  - FEBRILE BONE MARROW APLASIA [None]
  - MUCOSAL INFLAMMATION [None]
